FAERS Safety Report 22278953 (Version 1)
Quarter: 2023Q2

REPORT INFORMATION
  Report Type: Spontaneous
  Country: US (occurrence: None)
  Receive Date: 20230503
  Receipt Date: 20230503
  Transmission Date: 20230722
  Serious: No
  Sender: FDA-Public Use
  Company Number: 2023A102888

PATIENT
  Age: 879 Month
  Sex: Male
  Weight: 74.8 kg

DRUGS (2)
  1. BUDESONIDE\FORMOTEROL [Suspect]
     Active Substance: BUDESONIDE\FORMOTEROL
     Indication: Asthma
     Dosage: 2 PUFF INHALED
     Route: 055
  2. BUDESONIDE\FORMOTEROL [Suspect]
     Active Substance: BUDESONIDE\FORMOTEROL
     Indication: Asthma
     Route: 055
     Dates: start: 1990

REACTIONS (9)
  - Chest discomfort [Unknown]
  - Wheezing [Unknown]
  - Back pain [Unknown]
  - Asthma [Unknown]
  - Cough [Unknown]
  - Hypersensitivity [Unknown]
  - Intentional product misuse [Unknown]
  - Device use issue [Unknown]
  - Device defective [Unknown]

NARRATIVE: CASE EVENT DATE: 20221201
